FAERS Safety Report 13709879 (Version 1)
Quarter: 2017Q2

REPORT INFORMATION
  Report Type: Spontaneous
  Country: US (occurrence: US)
  Receive Date: 20170630
  Receipt Date: 20170630
  Transmission Date: 20170830
  Serious: Yes (Hospitalization)
  Sender: FDA-Public Use
  Company Number: None

PATIENT
  Age: 33 Year
  Sex: Female

DRUGS (1)
  1. INSULIN [Suspect]
     Active Substance: INSULIN NOS
     Indication: DIABETES MELLITUS
     Dosage: 20 UNITS EVERY DAY SQ
     Route: 058
     Dates: start: 20170619

REACTIONS (3)
  - Weight increased [None]
  - Oedema peripheral [None]
  - Headache [None]

NARRATIVE: CASE EVENT DATE: 20170627
